FAERS Safety Report 12836846 (Version 2)
Quarter: 2016Q4

REPORT INFORMATION
  Report Type: Report from Study
  Country: US (occurrence: US)
  Receive Date: 20161011
  Receipt Date: 20161118
  Transmission Date: 20170207
  Serious: Yes (Hospitalization, Other)
  Sender: FDA-Public Use
  Company Number: US-PFIZER INC-2016468196

PATIENT
  Age: 54 Year
  Sex: Female
  Weight: 66.2 kg

DRUGS (6)
  1. VANCOMYCIN HCL [Suspect]
     Active Substance: VANCOMYCIN HYDROCHLORIDE
     Dosage: 1000 MG, Q12H
     Route: 042
     Dates: start: 20160730, end: 20160802
  2. VANCOMYCIN HCL [Suspect]
     Active Substance: VANCOMYCIN HYDROCHLORIDE
     Dosage: 1250 MG, Q12H
     Route: 042
     Dates: start: 20160802, end: 20160804
  3. VANCOMYCIN HCL [Suspect]
     Active Substance: VANCOMYCIN HYDROCHLORIDE
     Indication: BRONCHITIS
     Dosage: 1250 MG, ONCE
     Route: 042
     Dates: start: 20160730, end: 20160730
  4. VANCOMYCIN HCL [Suspect]
     Active Substance: VANCOMYCIN HYDROCHLORIDE
     Dosage: 1500 MG, Q12H
     Route: 042
     Dates: start: 20160804, end: 20160805
  5. VANCOMYCIN HCL [Suspect]
     Active Substance: VANCOMYCIN HYDROCHLORIDE
     Dosage: 125 MG, Q6H
     Route: 048
     Dates: start: 20160730, end: 20160804
  6. DOXYCYCLINE. [Concomitant]
     Active Substance: DOXYCYCLINE
     Dosage: 100 MG, 2X/DAY
     Dates: start: 20160725

REACTIONS (1)
  - Renal tubular necrosis [Recovered/Resolved]

NARRATIVE: CASE EVENT DATE: 20160805
